FAERS Safety Report 4412565-4 (Version None)
Quarter: 2004Q3

REPORT INFORMATION
  Report Type: 
  Country: None (occurrence: None)
  Receive Date: 20040731
  Receipt Date: 20040726
  Transmission Date: 20050211
  Serious: Yes (Death, Hospitalization)
  Sender: FDA-Public Use
  Company Number: PHBS2004IT10002

PATIENT
  Age: 57 Year
  Sex: Male

DRUGS (4)
  1. CYCLOSPORINE [Suspect]
     Indication: LUNG TRANSPLANT
     Dosage: 150 MG, BID
     Route: 065
     Dates: start: 20011101
  2. AZATHIOPRINE [Suspect]
     Indication: LUNG TRANSPLANT
     Dosage: 100 MG, QD
     Route: 065
     Dates: start: 20011101
  3. PREDNISOLONE [Suspect]
     Indication: LUNG TRANSPLANT
     Dosage: 25 MG, QID
     Route: 065
     Dates: start: 20011101
  4. GANCICLOVIR [Concomitant]
     Dosage: 5 MG/KG, QD
     Route: 042

REACTIONS (10)
  - BLOOD CREATININE INCREASED [None]
  - CYTOMEGALOVIRUS ANTIGEN POSITIVE [None]
  - CYTOMEGALOVIRUS VIRAEMIA [None]
  - DNA ANTIBODY POSITIVE [None]
  - DYSPEPSIA [None]
  - HEPATIC ENZYME INCREASED [None]
  - NEPHROPATHY TOXIC [None]
  - PULMONARY TUBERCULOSIS [None]
  - PYREXIA [None]
  - RESPIRATORY FAILURE [None]
